FAERS Safety Report 25913390 (Version 1)
Quarter: 2025Q4

REPORT INFORMATION
  Report Type: Spontaneous
  Country: CN (occurrence: CN)
  Receive Date: 20251013
  Receipt Date: 20251013
  Transmission Date: 20260119
  Serious: Yes (Hospitalization)
  Sender: COSETTE PHARMACEUTICALS INC
  Company Number: CN-SA-2025SA293479

PATIENT
  Age: 17 Year
  Sex: Female
  Weight: 63 kg

DRUGS (5)
  1. AMBIEN [Suspect]
     Active Substance: ZOLPIDEM TARTRATE
     Indication: Depressed mood
     Route: 048
     Dates: start: 20250922, end: 20250922
  2. QUETIAPINE [Suspect]
     Active Substance: QUETIAPINE
     Indication: Depressed mood
     Route: 048
     Dates: start: 20250922, end: 20250922
  3. PREGABALIN [Suspect]
     Active Substance: PREGABALIN
     Indication: Depressed mood
     Route: 048
     Dates: start: 20250922, end: 20250922
  4. SERTRALINE [Suspect]
     Active Substance: SERTRALINE HYDROCHLORIDE
     Indication: Depressed mood
     Route: 048
     Dates: start: 20250922, end: 20250922
  5. ACETAMINOPHEN\AMANTADINE\BOS TAURUS GALLSTONE\CAFFEINE\CHLORPHENIRAMIN [Suspect]
     Active Substance: ACETAMINOPHEN\AMANTADINE\BOS TAURUS GALLSTONE\CAFFEINE\CHLORPHENIRAMINE
     Indication: Depressed mood
     Route: 048
     Dates: start: 20250922, end: 20250922

REACTIONS (3)
  - Restlessness [Recovering/Resolving]
  - Disorganised speech [Recovering/Resolving]
  - Intentional overdose [Unknown]

NARRATIVE: CASE EVENT DATE: 20250922
